FAERS Safety Report 13667622 (Version 10)
Quarter: 2020Q4

REPORT INFORMATION
  Report Type: Report from Study
  Country: FR (occurrence: FR)
  Receive Date: 20170620
  Receipt Date: 20201218
  Transmission Date: 20210113
  Serious: Yes (Death, Hospitalization, Other)
  Sender: FDA-Public Use
  Company Number: FR-BRISTOL-MYERS SQUIBB COMPANY-BMS-2017-051740

PATIENT
  Age: 48 Year
  Sex: Female

DRUGS (4)
  1. OXYNORM [Concomitant]
     Active Substance: OXYCODONE HYDROCHLORIDE
     Indication: PRODUCT USED FOR UNKNOWN INDICATION
     Dosage: 5 MG, UNK
     Route: 065
  2. OXYCODONE [Concomitant]
     Active Substance: OXYCODONE
     Indication: PRODUCT USED FOR UNKNOWN INDICATION
     Dosage: UNK, BID
     Route: 065
  3. NIVOLUMAB [Suspect]
     Active Substance: NIVOLUMAB
     Indication: LUNG NEOPLASM MALIGNANT
     Dosage: 150 MILLIGRAM, 15 DAYS
     Route: 042
     Dates: start: 20170331, end: 20170518
  4. DOLIPRANE [Concomitant]
     Active Substance: ACETAMINOPHEN
     Indication: PRODUCT USED FOR UNKNOWN INDICATION
     Dosage: UNK
     Route: 065

REACTIONS (15)
  - Malignant neoplasm progression [Fatal]
  - Pneumothorax [Unknown]
  - Dyspnoea [Unknown]
  - Respiratory failure [Unknown]
  - Pleural effusion [Unknown]
  - Pneumonia [Unknown]
  - Off label use [Unknown]
  - Atelectasis [Unknown]
  - Packed red blood cell transfusion [Unknown]
  - Lymphangiosis carcinomatosa [Fatal]
  - Sepsis [Fatal]
  - Thoracic cavity drainage [Unknown]
  - Tumour associated fever [Unknown]
  - Respiratory distress [Fatal]
  - Anaemia [Unknown]

NARRATIVE: CASE EVENT DATE: 20170518
